FAERS Safety Report 8339740-0 (Version None)
Quarter: 2012Q2

REPORT INFORMATION
  Report Type: 
  Country: None (occurrence: None)
  Receive Date: 20120507
  Receipt Date: 20120503
  Transmission Date: 20120825
  Serious: Yes (Life-Threatening, Hospitalization)
  Sender: FDA-Public Use
  Company Number: AU-B.I. PHARMACEUTICALS,INC./RIDGEFIELD-2012-AU-00396AU

PATIENT
  Sex: Male

DRUGS (6)
  1. METOPROLOL TARTRATE [Concomitant]
     Indication: ATRIAL FIBRILLATION
     Dosage: 100 MG
  2. ATORVASTATIN CALCIUM [Concomitant]
     Indication: HYPERLIPIDAEMIA
  3. PANTOPRAZOLE [Concomitant]
     Indication: GASTROOESOPHAGEAL REFLUX DISEASE
  4. PERINDOPRIL ERBUMINE [Concomitant]
  5. PRADAXA [Suspect]
     Indication: ATRIAL FIBRILLATION
     Dosage: 300 MG
     Dates: start: 20110607, end: 20111117
  6. AMLODIPINE [Concomitant]

REACTIONS (4)
  - MYOCARDIAL INFARCTION [None]
  - CORONARY ARTERY STENOSIS [None]
  - INTRACARDIAC THROMBUS [None]
  - CHEST PAIN [None]
